FAERS Safety Report 16703901 (Version 1)
Quarter: 2019Q3

REPORT INFORMATION
  Report Type: Spontaneous
  Country: GB (occurrence: GB)
  Receive Date: 20190814
  Receipt Date: 20190814
  Transmission Date: 20191004
  Serious: Yes (Other)
  Sender: FDA-Public Use
  Company Number: GB-TEVA-2019-GB-1091680

PATIENT
  Age: 49 Year
  Sex: Male
  Weight: 90 kg

DRUGS (4)
  1. LYMECYCLINE [Concomitant]
     Active Substance: LYMECYCLINE
     Dates: start: 20171114
  2. BECLOMETASONE [Concomitant]
     Active Substance: BECLOMETHASONE DIPROPIONATE
     Dosage: SPRAY TWICE INTO EACH NOSTRIL TWICE A DAY
     Dates: start: 20190517, end: 20190611
  3. GABAPENTIN. [Suspect]
     Active Substance: GABAPENTIN
     Route: 048
     Dates: start: 20190702
  4. AMOXICILLIN. [Concomitant]
     Active Substance: AMOXICILLIN
     Dates: start: 20190517, end: 20190522

REACTIONS (4)
  - Insomnia [Unknown]
  - Dizziness [Unknown]
  - Thinking abnormal [Unknown]
  - Confusional state [Unknown]

NARRATIVE: CASE EVENT DATE: 20190710
